FAERS Safety Report 7701750-1 (Version None)
Quarter: 2011Q3

REPORT INFORMATION
  Report Type: 
  Country: None (occurrence: None)
  Receive Date: 20110822
  Receipt Date: 20110811
  Transmission Date: 20111222
  Serious: Yes (Other)
  Sender: FDA-Public Use
  Company Number: ES-SANOFI-AVENTIS-2011SA051665

PATIENT
  Age: 61 Year
  Sex: Female
  Weight: 66 kg

DRUGS (6)
  1. FUROSEMIDE [Suspect]
     Route: 048
     Dates: start: 20100319
  2. BISOPROLOL FUMARATE [Suspect]
     Route: 048
     Dates: start: 20110408
  3. ALDACTONE [Suspect]
     Route: 048
     Dates: start: 20100319
  4. DIGOXIN [Interacting]
     Route: 048
     Dates: start: 20091113
  5. LEVOTHYROXINE SODIUM [Suspect]
     Route: 048
     Dates: start: 20110325
  6. MULTAQ [Interacting]
     Route: 048
     Dates: start: 20101108, end: 20110516

REACTIONS (5)
  - FATIGUE [None]
  - PALPITATIONS [None]
  - DRUG INTERACTION [None]
  - ELECTROCARDIOGRAM ST SEGMENT DEPRESSION [None]
  - TOXICITY TO VARIOUS AGENTS [None]
